FAERS Safety Report 6831197-1 (Version None)
Quarter: 2010Q3

REPORT INFORMATION
  Report Type: 
  Country: None (occurrence: None)
  Receive Date: 20100709
  Receipt Date: 20100709
  Transmission Date: 20110219
  Serious: Yes (Other)
  Sender: FDA-Public Use
  Company Number: None

PATIENT
  Age: 34 Year
  Sex: Female
  Weight: 56.246 kg

DRUGS (1)
  1. BUPROPION HCL [Suspect]
     Indication: SMOKING CESSATION THERAPY
     Dosage: 150 MG TWICE DAILY PO
     Route: 048
     Dates: start: 20100628, end: 20100707

REACTIONS (1)
  - ERYTHEMA MULTIFORME [None]
